FAERS Safety Report 7015439-8 (Version None)
Quarter: 2010Q3

REPORT INFORMATION
  Report Type: 
  Country: None (occurrence: None)
  Receive Date: 20100927
  Receipt Date: 20100915
  Transmission Date: 20110219
  Serious: Yes (Other)
  Sender: FDA-Public Use
  Company Number: US-ELI_LILLY_AND_COMPANY-US201003005646

PATIENT
  Sex: Female

DRUGS (10)
  1. FORTEO [Suspect]
     Indication: OSTEOPOROSIS
     Dosage: 20 UG, DAILY (1/D)
     Dates: start: 20100108
  2. FORTEO [Suspect]
     Dosage: 20 UG, DAILY (1/D)
     Dates: start: 20100101
  3. SYNTHROID [Concomitant]
     Indication: THYROID DISORDER
  4. POTASSIUM [Concomitant]
     Indication: RENAL DISORDER
  5. LASIX [Concomitant]
     Indication: RENAL DISORDER
  6. PROVENTIL /00139502/ [Concomitant]
     Indication: RESPIRATORY THERAPY
     Route: 055
  7. PAXIL [Concomitant]
     Indication: DIZZINESS
  8. FLEXERIL [Concomitant]
     Indication: MUSCLE RELAXANT THERAPY
  9. CELEBREX [Concomitant]
  10. BENICAR [Concomitant]
     Indication: BLOOD PRESSURE

REACTIONS (3)
  - FATIGUE [None]
  - PAIN [None]
  - SURGERY [None]
